FAERS Safety Report 15625627 (Version 7)
Quarter: 2018Q4

REPORT INFORMATION
  Report Type: Report from Study
  Country: US (occurrence: US)
  Receive Date: 20181116
  Receipt Date: 20181211
  Transmission Date: 20190205
  Serious: Yes (Hospitalization)
  Sender: FDA-Public Use
  Company Number: PHHO2018US011559

PATIENT
  Age: 33 Year
  Sex: Female

DRUGS (4)
  1. PACLITAXEL. [Suspect]
     Active Substance: PACLITAXEL
     Indication: OVARIAN CANCER RECURRENT
     Route: 042
  2. ROBITUSSIN AC [Concomitant]
     Indication: COUGH
     Dosage: 10 ML, PRN
     Route: 048
     Dates: start: 20181110
  3. KISQALI [Suspect]
     Active Substance: RIBOCICLIB
     Indication: OVARIAN CANCER RECURRENT
     Route: 048
  4. CARBOPLATIN. [Suspect]
     Active Substance: CARBOPLATIN
     Indication: OVARIAN CANCER RECURRENT
     Route: 042

REACTIONS (2)
  - Haemoptysis [Recovered/Resolved]
  - Embolism [Recovered/Resolved]

NARRATIVE: CASE EVENT DATE: 20181016
